FAERS Safety Report 23052314 (Version 2)
Quarter: 2023Q4

REPORT INFORMATION
  Report Type: Report from Study
  Country: US (occurrence: US)
  Receive Date: 20231010
  Receipt Date: 20231010
  Transmission Date: 20240109
  Serious: Yes (Hospitalization, Other)
  Sender: FDA-Public Use
  Company Number: US-ABBVIE-5369843

PATIENT
  Sex: Female
  Weight: 43 kg

DRUGS (3)
  1. SKYRIZI [Suspect]
     Active Substance: RISANKIZUMAB-RZAA
     Indication: Crohn^s disease
     Route: 058
     Dates: start: 20221031
  2. PREDNISONE [Concomitant]
     Active Substance: PREDNISONE
     Indication: Product used for unknown indication
  3. ACETAMINOPHEN [Concomitant]
     Active Substance: ACETAMINOPHEN
     Indication: Product used for unknown indication

REACTIONS (11)
  - Hepatic enzyme increased [Unknown]
  - Therapeutic product effect decreased [Unknown]
  - Myocardial infarction [Unknown]
  - Liver disorder [Unknown]
  - Clostridium difficile infection [Unknown]
  - Aspartate aminotransferase increased [Unknown]
  - Crohn^s disease [Unknown]
  - Alanine aminotransferase increased [Unknown]
  - Septic shock [Unknown]
  - Fat tissue increased [Unknown]
  - Atrial fibrillation [Unknown]
